FAERS Safety Report 9515891 (Version 1)
Quarter: 2013Q3

REPORT INFORMATION
  Report Type: Spontaneous
  Country: CA (occurrence: CA)
  Receive Date: 20130911
  Receipt Date: 20130911
  Transmission Date: 20140515
  Serious: Yes (Other)
  Sender: FDA-Public Use
  Company Number: CA-PFIZER INC-2013259443

PATIENT
  Sex: Male

DRUGS (1)
  1. LIPITOR [Suspect]
     Dosage: UNK

REACTIONS (4)
  - Neoplasm malignant [Unknown]
  - Oropharyngeal pain [Not Recovered/Not Resolved]
  - Nasopharyngitis [Unknown]
  - Tooth fracture [Unknown]
